FAERS Safety Report 23239068 (Version 1)
Quarter: 2023Q4

REPORT INFORMATION
  Report Type: Spontaneous
  Country: US (occurrence: US)
  Receive Date: 20231129
  Receipt Date: 20231129
  Transmission Date: 20240109
  Serious: Yes (Other)
  Sender: FDA-Public Use
  Company Number: US-PADAGIS-2023PAD01683

PATIENT

DRUGS (4)
  1. FLUOCINONIDE [Suspect]
     Active Substance: FLUOCINONIDE
     Indication: Pemphigus
     Dosage: UNK
     Route: 061
  2. AZATHIOPRINE [Suspect]
     Active Substance: AZATHIOPRINE
     Indication: Pemphigus
     Dosage: UNK
     Route: 048
  3. PREDNISONE [Suspect]
     Active Substance: PREDNISONE
     Indication: Pemphigus
     Dosage: UNK
     Route: 048
  4. PREDNISONE [Suspect]
     Active Substance: PREDNISONE
     Dosage: UNK (DOSE TAPERED)
     Route: 048

REACTIONS (1)
  - Treatment failure [Unknown]
